FAERS Safety Report 7428393-1 (Version None)
Quarter: 2011Q2

REPORT INFORMATION
  Report Type: 
  Country: None (occurrence: None)
  Receive Date: 20110413
  Receipt Date: 20110331
  Transmission Date: 20111010
  Serious: Yes (Other)
  Sender: FDA-Public Use
  Company Number: 2011P1005526

PATIENT
  Age: 77 Year
  Sex: Female
  Weight: 56.6996 kg

DRUGS (6)
  1. CETIRIZINE HYDROCHLORIDE [Suspect]
     Indication: MULTIPLE ALLERGIES
     Dosage: 10 MG; HS PO 5 MG; AM; PO 5 MG; NOON; PO 10 MG; HS; PO
     Route: 048
     Dates: start: 20110329
  2. CETIRIZINE HYDROCHLORIDE [Suspect]
     Indication: MULTIPLE ALLERGIES
     Dosage: 10 MG; HS PO 5 MG; AM; PO 5 MG; NOON; PO 10 MG; HS; PO
     Route: 048
     Dates: start: 20110329
  3. CETIRIZINE HYDROCHLORIDE [Suspect]
     Indication: MULTIPLE ALLERGIES
     Dosage: 10 MG; HS PO 5 MG; AM; PO 5 MG; NOON; PO 10 MG; HS; PO
     Route: 048
     Dates: start: 20110324, end: 20110328
  4. CETIRIZINE HYDROCHLORIDE [Suspect]
     Indication: MULTIPLE ALLERGIES
     Dosage: 10 MG; HS PO 5 MG; AM; PO 5 MG; NOON; PO 10 MG; HS; PO
     Route: 048
     Dates: start: 20110329
  5. UNSPECIFIED VITAMINS [Concomitant]
  6. FISH OIL [Concomitant]

REACTIONS (8)
  - DRY THROAT [None]
  - NO THERAPEUTIC RESPONSE [None]
  - OROPHARYNGEAL PAIN [None]
  - THROAT TIGHTNESS [None]
  - DYSPNOEA [None]
  - DRUG HYPERSENSITIVITY [None]
  - NASOPHARYNGITIS [None]
  - TONGUE DISORDER [None]
